FAERS Safety Report 13362429 (Version 2)
Quarter: 2017Q2

REPORT INFORMATION
  Report Type: Report from Study
  Country: US (occurrence: US)
  Receive Date: 20170323
  Receipt Date: 20170519
  Transmission Date: 20170830
  Serious: Yes (Hospitalization, Other)
  Sender: FDA-Public Use
  Company Number: PHEH2017US008261

PATIENT
  Sex: Female

DRUGS (1)
  1. EXTAVIA [Suspect]
     Active Substance: INTERFERON BETA-1B
     Indication: MULTIPLE SCLEROSIS
     Dosage: 0.25 MG (1 ML), QOD
     Route: 058

REACTIONS (6)
  - Fall [Unknown]
  - Muscle oedema [Unknown]
  - Muscle injury [Unknown]
  - Pain in extremity [Unknown]
  - Paraparesis [Unknown]
  - Muscular weakness [Unknown]
